FAERS Safety Report 18200173 (Version 1)
Quarter: 2020Q3

REPORT INFORMATION
  Report Type: Spontaneous
  Country: IT (occurrence: IT)
  Receive Date: 20200827
  Receipt Date: 20200827
  Transmission Date: 20201103
  Serious: Yes (Hospitalization, Other)
  Sender: FDA-Public Use
  Company Number: IT-AUROBINDO-09-AUR-09571

PATIENT
  Age: 57 Year
  Sex: Male
  Weight: 65 kg

DRUGS (2)
  1. VERAPAMIL [Suspect]
     Active Substance: VERAPAMIL HYDROCHLORIDE
     Indication: PRODUCT USED FOR UNKNOWN INDICATION
     Dosage: 20 DOSAGE FORM TOTAL (1600MG)
     Route: 048
  2. ATENOLOL  100 MG FILM COATED TABLETS [Suspect]
     Active Substance: ATENOLOL
     Indication: PRODUCT USED FOR UNKNOWN INDICATION
     Dosage: 28 DOSAGE FORM TOTAL (2800MG)
     Route: 048

REACTIONS (10)
  - Cardiogenic shock [Recovered/Resolved]
  - Atrioventricular block first degree [Unknown]
  - Pulse absent [Recovered/Resolved]
  - Intentional overdose [Recovered/Resolved]
  - Nasopharyngitis [Recovered/Resolved]
  - Sinus bradycardia [Unknown]
  - Pulmonary oedema [Unknown]
  - Hypoventilation [Recovered/Resolved]
  - Coma scale abnormal [Recovered/Resolved]
  - Cold sweat [Recovered/Resolved]
